FAERS Safety Report 10434484 (Version 2)
Quarter: 2014Q3

REPORT INFORMATION
  Report Type: Spontaneous
  Country: JP (occurrence: JP)
  Receive Date: 20140905
  Receipt Date: 20140916
  Transmission Date: 20150326
  Serious: Yes (Hospitalization, Other)
  Sender: FDA-Public Use
  Company Number: JP-BAXTER-2014BAX053000

PATIENT
  Age: 81 Year
  Sex: Male

DRUGS (2)
  1. DIANEAL [Suspect]
     Active Substance: CALCIUM CHLORIDE\DEXTROSE\MAGNESIUM CHLORIDE\SODIUM CHLORIDE\SODIUM LACTATE
     Indication: NEPHROSCLEROSIS
     Route: 033
  2. EXTRANEAL [Suspect]
     Active Substance: CALCIUM CHLORIDE\ICODEXTRIN\MAGNESIUM CHLORIDE\SODIUM CHLORIDE\SODIUM LACTATE
     Indication: NEPHROSCLEROSIS
     Route: 033

REACTIONS (5)
  - Enteritis infectious [Unknown]
  - Catheter site infection [Unknown]
  - Back pain [Unknown]
  - Inguinal hernia [Unknown]
  - Peritonitis bacterial [Recovering/Resolving]
